FAERS Safety Report 21674812 (Version 4)
Quarter: 2024Q4

REPORT INFORMATION
  Report Type: Spontaneous
  Country: US (occurrence: US)
  Receive Date: 20221202
  Receipt Date: 20241018
  Transmission Date: 20250115
  Serious: Yes (Hospitalization)
  Sender: SANOFI AVENTIS
  Company Number: US-SA-SAC20221201001156

PATIENT
  Age: 65 Year
  Sex: Male

DRUGS (4)
  1. ELOCTATE [Suspect]
     Active Substance: EFMOROCTOCOG ALFA
     Dosage: 5000 U (+/-10%) 2 (TW0) TIMES A WEEK OR AS NEEDED
     Route: 042
  2. ELOCTATE [Suspect]
     Active Substance: EFMOROCTOCOG ALFA
     Dosage: 5000 U (+/-10%) 2 (TW0) TIMES A WEEK OR AS NEEDED
     Route: 042
  3. ELOCTATE [Suspect]
     Active Substance: EFMOROCTOCOG ALFA
     Dosage: 6700 IU
     Route: 042
  4. ELOCTATE [Suspect]
     Active Substance: EFMOROCTOCOG ALFA
     Dosage: 6700 IU
     Route: 042

REACTIONS (6)
  - Shoulder operation [Unknown]
  - Procedural pain [Not Recovered/Not Resolved]
  - Burning sensation [Unknown]
  - Oedema [Not Recovered/Not Resolved]
  - Bronchitis [Unknown]
  - Cholelithiasis [Unknown]

NARRATIVE: CASE EVENT DATE: 20221127
